FAERS Safety Report 4847709-3 (Version None)
Quarter: 2005Q4

REPORT INFORMATION
  Report Type: 
  Country: None (occurrence: None)
  Receive Date: 20051205
  Receipt Date: 20051121
  Transmission Date: 20060501
  Serious: Yes (Hospitalization)
  Sender: FDA-Public Use
  Company Number: 12916

PATIENT
  Age: 59 Year
  Sex: Female
  Weight: 71 kg

DRUGS (2)
  1. CARBOPLATIN [Suspect]
     Dosage: 760 MG ONCE IV
     Route: 042
  2. PACLITAXEL [Concomitant]

REACTIONS (5)
  - CHEST DISCOMFORT [None]
  - EYE PAIN [None]
  - FLUSHING [None]
  - INFUSION RELATED REACTION [None]
  - NASAL CONGESTION [None]
